FAERS Safety Report 18628978 (Version 1)
Quarter: 2020Q4

REPORT INFORMATION
  Report Type: Spontaneous
  Country: US (occurrence: US)
  Receive Date: 20201217
  Receipt Date: 20201217
  Transmission Date: 20210114
  Serious: Yes (Other)
  Sender: FDA-Public Use
  Company Number: None

PATIENT
  Age: 89 Year
  Sex: Female

DRUGS (10)
  1. SAMSCA [Suspect]
     Active Substance: TOLVAPTAN
     Indication: HYPONATRAEMIA
     Route: 048
     Dates: start: 20201118
  2. MELOXICAM 15MG [Concomitant]
     Active Substance: MELOXICAM
  3. FUROSEMIDE 80MG [Concomitant]
     Dates: start: 20201118
  4. ONDANSETRON 4MG [Concomitant]
     Active Substance: ONDANSETRON
  5. SERTRALINE 50MG [Concomitant]
     Active Substance: SERTRALINE HYDROCHLORIDE
  6. PANTOPRAZOLE 40MG [Concomitant]
     Active Substance: PANTOPRAZOLE SODIUM
  7. NITROGLYCERIN 0.4MG [Concomitant]
  8. METOPROLOL ER SUCCINATE 25MG [Concomitant]
  9. LEVALBUTEROL 0.63MG/3ML SOLN [Concomitant]
  10. CARISOPRODOL 350MG [Concomitant]
     Active Substance: CARISOPRODOL

REACTIONS (4)
  - Renal pain [None]
  - Visual impairment [None]
  - Peripheral swelling [None]
  - Angina pectoris [None]

NARRATIVE: CASE EVENT DATE: 20201217
